FAERS Safety Report 4684470-X (Version None)
Quarter: 2005Q2

REPORT INFORMATION
  Report Type: 
  Country: None (occurrence: None)
  Receive Date: 20050606
  Receipt Date: 20050522
  Transmission Date: 20051028
  Serious: Yes (Other)
  Sender: FDA-Public Use
  Company Number: 2005077546

PATIENT
  Age: 34 Year
  Sex: Male
  Weight: 86.1834 kg

DRUGS (1)
  1. LUDEN'S (MENTHOL, PECTIN) [Suspect]
     Dosage: 60 DROPS ONCE, ORAL
     Route: 048
     Dates: start: 20050522, end: 20050522

REACTIONS (3)
  - ABNORMAL BEHAVIOUR [None]
  - OVERDOSE [None]
  - PARANOIA [None]
